FAERS Safety Report 7864230-9 (Version None)
Quarter: 2011Q4

REPORT INFORMATION
  Report Type: 
  Country: None (occurrence: None)
  Receive Date: 20111028
  Receipt Date: 20111024
  Transmission Date: 20120403
  Serious: Yes (Other)
  Sender: FDA-Public Use
  Company Number: CA-PFIZER INC-2011259030

PATIENT
  Age: 26 Year
  Sex: Female
  Weight: 56.236 kg

DRUGS (8)
  1. FLONASE [Concomitant]
     Indication: SINUSITIS
     Dosage: DAILY
     Route: 045
  2. TRILIPIX [Concomitant]
     Indication: INSOMNIA
  3. EFFEXOR [Concomitant]
     Indication: GENERALISED ANXIETY DISORDER
     Dosage: 150 MG, 1X/DAY
  4. MULTI-VITAMINS [Concomitant]
     Dosage: UNK
  5. DEPO-PROVERA [Suspect]
     Indication: CONTRACEPTION
     Dosage: SINGLE INJECTION
     Dates: start: 20110601, end: 20110601
  6. DEPO-PROVERA [Suspect]
     Indication: OESTROGEN DEFICIENCY
  7. TRILIPIX [Concomitant]
     Indication: GENERALISED ANXIETY DISORDER
     Dosage: 10 MG, 1X/DAY
  8. ESCITALOPRAM [Concomitant]
     Dosage: UNK

REACTIONS (3)
  - MENORRHAGIA [None]
  - MENSTRUATION DELAYED [None]
  - IRON DEFICIENCY [None]
